FAERS Safety Report 4855359-8 (Version None)
Quarter: 2005Q4

REPORT INFORMATION
  Report Type: 
  Country: None (occurrence: None)
  Receive Date: 20051125
  Receipt Date: 20050713
  Transmission Date: 20060501
  Serious: Yes (Other)
  Sender: FDA-Public Use
  Company Number: US-JNJFOC-20050703123

PATIENT
  Age: 63 Year
  Sex: Female

DRUGS (10)
  1. LEVAQUIN [Suspect]
     Indication: RESPIRATORY TRACT INFECTION
     Dosage: 750 MG
     Dates: start: 20050627, end: 20050703
  2. ATENOLOL [Concomitant]
  3. PREDNISONE [Concomitant]
  4. NEURONTIN [Concomitant]
  5. MS CONTIN [Concomitant]
  6. PREVACID (ALNSOPRAZOLE) [Concomitant]
  7. WELLBUTRIN SR [Concomitant]
  8. PLAQUENIL [Concomitant]
  9. ACTONEL [Concomitant]
  10. GLUCOPHAGE [Concomitant]

REACTIONS (1)
  - BLOOD GLUCOSE DECREASED [None]
